FAERS Safety Report 11734413 (Version 10)
Quarter: 2020Q4

REPORT INFORMATION
  Report Type: Spontaneous
  Country: US (occurrence: US)
  Receive Date: 20151113
  Receipt Date: 20201119
  Transmission Date: 20210113
  Serious: Yes (Congenital Anomaly, Other)
  Sender: FDA-Public Use
  Company Number: PHEH2015US022873

PATIENT
  Sex: Female

DRUGS (3)
  1. ONDANSETRON DR REDDY [Suspect]
     Active Substance: ONDANSETRON
     Indication: FOETAL EXPOSURE DURING PREGNANCY
     Dosage: MOTHER^S DOSE: 4 MG, PRN
     Route: 064
  2. ONDANSETRON [Suspect]
     Active Substance: ONDANSETRON
     Indication: FOETAL EXPOSURE DURING PREGNANCY
     Dosage: MOTHER^S DOSE FREQUENCY: PRN
     Route: 064
  3. ZOFRAN [Suspect]
     Active Substance: ONDANSETRON HYDROCHLORIDE
     Indication: FOETAL EXPOSURE DURING PREGNANCY
     Route: 064

REACTIONS (48)
  - Bladder agenesis [Unknown]
  - Splenomegaly [Unknown]
  - Ventricular septal defect [Unknown]
  - Cloacal exstrophy [Unknown]
  - Hypotonia [Unknown]
  - Dehydration [Unknown]
  - Rash [Unknown]
  - Congenital oesophageal anomaly [Unknown]
  - Foetal exposure during pregnancy [Unknown]
  - Chronic kidney disease [Unknown]
  - Tonsillar hypertrophy [Unknown]
  - Dysphagia [Unknown]
  - Anxiety [Unknown]
  - Renal cyst [Unknown]
  - Pseudohermaphroditism [Unknown]
  - VACTERL syndrome [Unknown]
  - Cellulitis [Unknown]
  - Seizure [Unknown]
  - Hydronephrosis [Unknown]
  - Interstitial lung disease [Unknown]
  - Haematochezia [Unknown]
  - Injury [Unknown]
  - Anhedonia [Unknown]
  - Abscess [Unknown]
  - Back pain [Unknown]
  - Nausea [Unknown]
  - Upper respiratory tract infection [Unknown]
  - Diarrhoea [Unknown]
  - Genitalia external ambiguous [Unknown]
  - Tracheo-oesophageal fistula [Unknown]
  - Pain [Unknown]
  - Cough [Unknown]
  - Multiple congenital abnormalities [Unknown]
  - Asthma [Unknown]
  - Atrial septal defect [Unknown]
  - Renal dysplasia [Unknown]
  - Congenital tracheomalacia [Unknown]
  - Ectopic ureter [Unknown]
  - Renal tubular atrophy [Unknown]
  - Nephropathy [Unknown]
  - Headache [Unknown]
  - Wheezing [Unknown]
  - Dental caries [Unknown]
  - Congenital anomaly [Unknown]
  - Multiple cardiac defects [Unknown]
  - Emotional distress [Unknown]
  - Vomiting [Unknown]
  - Oedema [Not Recovered/Not Resolved]
